FAERS Safety Report 4369090-9 (Version None)
Quarter: 2004Q2

REPORT INFORMATION
  Report Type: 
  Country: None (occurrence: None)
  Receive Date: 20040527
  Receipt Date: 20040506
  Transmission Date: 20050107
  Serious: Yes (Other)
  Sender: FDA-Public Use
  Company Number: USA040566891

PATIENT
  Age: 67 Year
  Sex: Female
  Weight: 65 kg

DRUGS (3)
  1. EVISTA [Suspect]
     Dates: start: 20000101, end: 20030101
  2. ACTONEL [Concomitant]
  3. ESTROGEN [Concomitant]

REACTIONS (1)
  - ENDOMETRIAL CANCER [None]
